FAERS Safety Report 25865674 (Version 3)
Quarter: 2025Q4

REPORT INFORMATION
  Report Type: Other
  Country: US (occurrence: US)
  Receive Date: 20250930
  Receipt Date: 20251230
  Transmission Date: 20260118
  Serious: No
  Sender: TRAVERE THERAPEUTICS
  Company Number: US-TRAVERE-2025TVT01497

PATIENT
  Age: 74 Year
  Sex: Female

DRUGS (1)
  1. FILSPARI [Suspect]
     Active Substance: SPARSENTAN
     Indication: IgA nephropathy
     Route: 048
     Dates: start: 20250731, end: 202510

REACTIONS (8)
  - Hypotension [None]
  - Myalgia [Unknown]
  - Syncope [None]
  - Product administration error [Unknown]
  - Asthenia [Unknown]
  - Dizziness [Unknown]
  - Heart rate decreased [Unknown]
  - Palpitations [Unknown]
